FAERS Safety Report 7402878-6 (Version None)
Quarter: 2011Q2

REPORT INFORMATION
  Report Type: 
  Country: None (occurrence: None)
  Receive Date: 20110408
  Receipt Date: 20110404
  Transmission Date: 20111010
  Serious: Yes (Hospitalization, Other)
  Sender: FDA-Public Use
  Company Number: JP-EISAI INC-E2020-08265-SPO-JP

PATIENT
  Sex: Male
  Weight: 58 kg

DRUGS (10)
  1. ARICEPT [Suspect]
     Indication: DEMENTIA ALZHEIMER'S TYPE
     Route: 048
     Dates: start: 20101210, end: 20101216
  2. ARICEPT [Suspect]
     Route: 048
     Dates: start: 20101217, end: 20101221
  3. ABILIFY [Suspect]
     Route: 048
     Dates: start: 20101031, end: 20101219
  4. AMOBAN [Concomitant]
     Indication: INSOMNIA
     Route: 048
     Dates: start: 20101102, end: 20101219
  5. PURSENNID [Concomitant]
     Indication: CONSTIPATION
     Route: 048
     Dates: start: 20101102, end: 20101219
  6. SEROQUEL [Concomitant]
     Indication: INSOMNIA
  7. LIMAS [Suspect]
     Route: 048
     Dates: start: 20101031, end: 20101220
  8. BERBERON [Concomitant]
     Indication: CONSTIPATION
     Route: 048
     Dates: start: 20101221
  9. SEROQUEL [Concomitant]
     Route: 048
     Dates: start: 20101102
  10. MAGMITT [Concomitant]
     Indication: CONSTIPATION
     Route: 048
     Dates: start: 20101101

REACTIONS (3)
  - HYPERAMMONAEMIA [None]
  - RHABDOMYOLYSIS [None]
  - DELIRIUM [None]
